FAERS Safety Report 12893187 (Version 1)
Quarter: 2016Q4

REPORT INFORMATION
  Report Type: Spontaneous
  Country: GB (occurrence: GB)
  Receive Date: 20161028
  Receipt Date: 20161028
  Transmission Date: 20170207
  Serious: Yes (Hospitalization)
  Sender: FDA-Public Use
  Company Number: GB-TEVA-706827ACC

PATIENT
  Age: 63 Year
  Sex: Male
  Weight: 82 kg

DRUGS (2)
  1. NITROFURANTOIN. [Suspect]
     Active Substance: NITROFURANTOIN
     Indication: PROPHYLAXIS URINARY TRACT INFECTION
     Dosage: 100 MILLIGRAM DAILY; AT NIGHT
     Route: 048
     Dates: start: 201503, end: 20160930
  2. ASPIRIN. [Concomitant]
     Active Substance: ASPIRIN
     Dosage: 75 MILLIGRAM DAILY;
     Route: 048

REACTIONS (9)
  - Abnormal loss of weight [Unknown]
  - Somnolence [Unknown]
  - Decreased appetite [Unknown]
  - Pulmonary fibrosis [Unknown]
  - Cough [Unknown]
  - Hepatitis chronic active [Unknown]
  - Lethargy [Unknown]
  - Constipation [Unknown]
  - Dyspnoea [Unknown]

NARRATIVE: CASE EVENT DATE: 201606
